FAERS Safety Report 7549670-X (Version None)
Quarter: 2011Q2

REPORT INFORMATION
  Report Type: 
  Country: None (occurrence: None)
  Receive Date: 20110609
  Receipt Date: 20110524
  Transmission Date: 20111010
  Serious: Yes (Hospitalization, Other)
  Sender: FDA-Public Use
  Company Number: 2011MA006370

PATIENT
  Age: 52 Year
  Sex: Female

DRUGS (7)
  1. METOPROLOL TARTRATE [Concomitant]
  2. DILTIAZEM HYDROCHLORIDE [Suspect]
     Dosage: 180 MG;OD;
  3. CLONIDINE [Concomitant]
  4. LOPINAVIR [Concomitant]
  5. NIFEDIPINE [Concomitant]
  6. HYDRALAZINE HCL [Concomitant]
  7. RITONAVIR [Concomitant]

REACTIONS (7)
  - DRUG INTERACTION [None]
  - DEPRESSED LEVEL OF CONSCIOUSNESS [None]
  - ELECTROCARDIOGRAM ABNORMAL [None]
  - HYPOTENSION [None]
  - ELECTROCARDIOGRAM QRS COMPLEX SHORTENED [None]
  - ARRHYTHMIA [None]
  - OVERDOSE [None]
